FAERS Safety Report 23274002 (Version 2)
Quarter: 2025Q2

REPORT INFORMATION
  Report Type: Spontaneous
  Country: US (occurrence: US)
  Receive Date: 20231208
  Receipt Date: 20250503
  Transmission Date: 20250717
  Serious: Yes (Hospitalization, Other)
  Sender: AUROBINDO
  Company Number: US-MLMSERVICE-20231121-4677237-1

PATIENT
  Age: 81 Year
  Sex: Male

DRUGS (1)
  1. DIVALPROEX SODIUM [Suspect]
     Active Substance: DIVALPROEX SODIUM
     Indication: Bipolar disorder
     Route: 065

REACTIONS (3)
  - Acidosis hyperchloraemic [Recovered/Resolved]
  - Fanconi syndrome [Recovered/Resolved]
  - Metabolic acidosis [Recovered/Resolved]
